FAERS Safety Report 23747728 (Version 1)
Quarter: 2024Q2

REPORT INFORMATION
  Report Type: Report from Study
  Country: ID (occurrence: None)
  Receive Date: 20240416
  Receipt Date: 20240416
  Transmission Date: 20240716
  Serious: Yes (Death, Hospitalization, Disabling, Other)
  Sender: FDA-Public Use
  Company Number: 2019SF64109

PATIENT
  Age: 25912 Day
  Sex: Male

DRUGS (4)
  1. TAGRISSO [Suspect]
     Active Substance: OSIMERTINIB
     Indication: Non-small cell lung cancer
     Route: 048
     Dates: start: 20191015
  2. TAGRISSO [Suspect]
     Active Substance: OSIMERTINIB
     Indication: Non-small cell lung cancer
     Dosage: 40.0MG UNKNOWN
     Route: 048
  3. EBASTINE [Concomitant]
     Active Substance: EBASTINE
     Indication: Pruritus
  4. TALC [Concomitant]
     Active Substance: TALC

REACTIONS (19)
  - Haemoglobin decreased [Recovering/Resolving]
  - Blood pressure increased [Recovering/Resolving]
  - Pyrexia [Fatal]
  - Dyspnoea [Not Recovered/Not Resolved]
  - Vomiting [Unknown]
  - Productive cough [Unknown]
  - General physical health deterioration [Recovering/Resolving]
  - Seizure [Recovering/Resolving]
  - Blood albumin increased [Unknown]
  - Pruritus [Recovering/Resolving]
  - Peripheral swelling [Recovering/Resolving]
  - Nausea [Unknown]
  - Headache [Recovering/Resolving]
  - Blood albumin decreased [Unknown]
  - Fatigue [Unknown]
  - Hypophagia [Unknown]
  - Gait inability [Recovering/Resolving]
  - Pain [Unknown]
  - Somnolence [Unknown]

NARRATIVE: CASE EVENT DATE: 20200110
